FAERS Safety Report 22020497 (Version 4)
Quarter: 2024Q1

REPORT INFORMATION
  Report Type: Spontaneous
  Country: FR (occurrence: FR)
  Receive Date: 20230222
  Receipt Date: 20240316
  Transmission Date: 20240410
  Serious: Yes (Hospitalization)
  Sender: FDA-Public Use
  Company Number: FR-ROCHE-3289500

PATIENT
  Age: 65 Year
  Sex: Female

DRUGS (13)
  1. XELODA [Suspect]
     Active Substance: CAPECITABINE
     Indication: Osteoporotic fracture
     Route: 048
  2. TRASTUZUMAB [Suspect]
     Active Substance: TRASTUZUMAB
     Indication: Product used for unknown indication
     Route: 042
  3. TRASTUZUMAB [Suspect]
     Active Substance: TRASTUZUMAB
     Route: 042
     Dates: start: 202005, end: 202104
  4. IMODIUM [Suspect]
     Active Substance: LOPERAMIDE HYDROCHLORIDE
     Indication: Prophylaxis against diarrhoea
     Route: 048
  5. KEPPRA [Suspect]
     Active Substance: LEVETIRACETAM
     Indication: Epilepsy
     Route: 048
     Dates: start: 20221207
  6. KEPPRA [Suspect]
     Active Substance: LEVETIRACETAM
     Route: 048
  7. KEPPRA [Suspect]
     Active Substance: LEVETIRACETAM
     Route: 048
     Dates: start: 202204
  8. KEPPRA [Suspect]
     Active Substance: LEVETIRACETAM
     Route: 048
     Dates: start: 20221124
  9. KEPPRA [Suspect]
     Active Substance: LEVETIRACETAM
     Route: 048
     Dates: start: 20221207
  10. RACECADOTRIL [Suspect]
     Active Substance: RACECADOTRIL
     Indication: Prophylaxis against diarrhoea
     Route: 048
  11. ENOXAPARIN SODIUM [Suspect]
     Active Substance: ENOXAPARIN SODIUM
     Indication: Thrombosis prophylaxis
     Route: 058
  12. TUKYSA [Suspect]
     Active Substance: TUCATINIB
     Indication: Targeted cancer therapy
     Route: 048
  13. ECONAZOLE [Concomitant]
     Active Substance: ECONAZOLE

REACTIONS (6)
  - Confusional state [Recovering/Resolving]
  - Epilepsy [Recovering/Resolving]
  - Status epilepticus [Recovering/Resolving]
  - Coma [Unknown]
  - Hypercapnia [Unknown]
  - Off label use [Unknown]

NARRATIVE: CASE EVENT DATE: 20221114
